FAERS Safety Report 19080301 (Version 4)
Quarter: 2021Q2

REPORT INFORMATION
  Report Type: Report from Study
  Country: AU (occurrence: AU)
  Receive Date: 20210331
  Receipt Date: 20210618
  Transmission Date: 20210717
  Serious: Yes (Hospitalization, Other)
  Sender: FDA-Public Use
  Company Number: AU-BRISTOL-MYERS SQUIBB COMPANY-BMS-2021-008441

PATIENT
  Age: 82 Year
  Sex: Female

DRUGS (8)
  1. BICARD [Concomitant]
     Indication: PRODUCT USED FOR UNKNOWN INDICATION
     Route: 065
  2. SIMVAR [Concomitant]
     Indication: PRODUCT USED FOR UNKNOWN INDICATION
     Route: 065
  3. ELIQUIS [Concomitant]
     Active Substance: APIXABAN
     Indication: PRODUCT USED FOR UNKNOWN INDICATION
     Route: 065
  4. UREX [FUROSEMIDE] [Concomitant]
     Indication: PRODUCT USED FOR UNKNOWN INDICATION
     Route: 065
  5. ENTRESTO [Concomitant]
     Active Substance: SACUBITRIL\VALSARTAN
     Indication: PRODUCT USED FOR UNKNOWN INDICATION
     Route: 065
  6. EUTROXSIG [Concomitant]
     Active Substance: LEVOTHYROXINE SODIUM
     Indication: PRODUCT USED FOR UNKNOWN INDICATION
  7. SPIRACTIN [SPIRONOLACTONE] [Concomitant]
     Active Substance: SPIRONOLACTONE
     Indication: PRODUCT USED FOR UNKNOWN INDICATION
     Dosage: UNK
     Route: 065
  8. NIVOLUMAB [Suspect]
     Active Substance: NIVOLUMAB
     Indication: MALIGNANT MELANOMA
     Dosage: 480 MILLIGRAM, 28 DAYS
     Route: 065

REACTIONS (11)
  - Skin lesion [Not Recovered/Not Resolved]
  - Gait disturbance [Recovering/Resolving]
  - Pain in extremity [Unknown]
  - Malignant neoplasm progression [Unknown]
  - Localised infection [Recovering/Resolving]
  - Fatigue [Unknown]
  - Asthenia [Unknown]
  - Insomnia [Unknown]
  - Inflammation of wound [Unknown]
  - Dyspnoea [Recovering/Resolving]
  - Myalgia [Recovering/Resolving]

NARRATIVE: CASE EVENT DATE: 20201001
